FAERS Safety Report 9861917 (Version 4)
Quarter: 2014Q2

REPORT INFORMATION
  Report Type: Report from Study
  Country: CA (occurrence: CA)
  Receive Date: 20140203
  Receipt Date: 20140611
  Transmission Date: 20141212
  Serious: Yes (Hospitalization)
  Sender: FDA-Public Use
  Company Number: CA-BRISTOL-MYERS SQUIBB COMPANY-20095691

PATIENT
  Age: 75 Year
  Sex: Female

DRUGS (7)
  1. ORENCIA [Suspect]
     Indication: RHEUMATOID ARTHRITIS
     Dosage: 1DF=750 UNIT NOS?EXP DT: MAR16?FREQ: 3WEEKS
     Dates: start: 20110614
  2. PREDNISONE [Concomitant]
  3. HYDROXYCHLOROQUINE [Concomitant]
  4. METHOTREXATE [Concomitant]
  5. CODEINE [Concomitant]
  6. PHOSPHATE ION [Concomitant]
  7. ADVAIR [Concomitant]

REACTIONS (2)
  - Pulmonary fibrosis [Recovering/Resolving]
  - Weight decreased [Unknown]
